FAERS Safety Report 4416184-5 (Version None)
Quarter: 2004Q2

REPORT INFORMATION
  Report Type: 
  Country: None (occurrence: None)
  Receive Date: 20040623
  Receipt Date: 20040310
  Transmission Date: 20050107
  Serious: Yes (Life-Threatening)
  Sender: FDA-Public Use
  Company Number: WAES 0403USA01047

PATIENT
  Age: 35 Year
  Sex: Female
  Weight: 67.586 kg

DRUGS (3)
  1. INVANZ [Suspect]
     Indication: ARTHRITIS BACTERIAL
     Dosage: 1 GM DAILY IV
     Route: 042
     Dates: start: 20040224, end: 20040304
  2. INVANZ [Suspect]
     Indication: CELLULITIS
     Dosage: 1 GM DAILY IV
     Route: 042
     Dates: start: 20040224, end: 20040304
  3. LEVAQUIN [Suspect]
     Dosage: 750 MG DAILY
     Dates: start: 20040304

REACTIONS (4)
  - ANAPHYLACTIC REACTION [None]
  - CHEST DISCOMFORT [None]
  - DYSPNOEA [None]
  - RASH PRURITIC [None]
